FAERS Safety Report 8836543 (Version 1)
Quarter: 2012Q4

REPORT INFORMATION
  Report Type: Spontaneous
  Country: US (occurrence: None)
  Receive Date: 20121009
  Receipt Date: 20121009
  Transmission Date: 20130627
  Serious: Yes (Hospitalization)
  Sender: FDA-Public Use
  Company Number: DSA_60017_2012

PATIENT
  Age: 48 Year
  Sex: Female

DRUGS (1)
  1. XENAZINE 25 MG (NOT SPECIFIED) [Suspect]
     Indication: TOURETTE^S DISORDER
     Route: 048
     Dates: start: 20110819

REACTIONS (1)
  - Transient ischaemic attack [None]
